FAERS Safety Report 16827781 (Version 2)
Quarter: 2019Q4

REPORT INFORMATION
  Report Type: Spontaneous
  Country: US (occurrence: US)
  Receive Date: 20190919
  Receipt Date: 20191004
  Transmission Date: 20200122
  Serious: Yes (Death, Other)
  Sender: FDA-Public Use
  Company Number: US-MAYNE PHARMA-2019MYN000715

PATIENT

DRUGS (1)
  1. CLOZAPINE. [Suspect]
     Active Substance: CLOZAPINE
     Indication: SCHIZOAFFECTIVE DISORDER
     Dosage: 150 MG, UNK
     Route: 048

REACTIONS (3)
  - General physical health deterioration [Unknown]
  - Dementia [Fatal]
  - Cognitive disorder [Unknown]
